FAERS Safety Report 9912224 (Version 2)
Quarter: 2014Q1

REPORT INFORMATION
  Report Type: Spontaneous
  Country: CH (occurrence: CH)
  Receive Date: 20140220
  Receipt Date: 20140226
  Transmission Date: 20141002
  Serious: Yes (Hospitalization)
  Sender: FDA-Public Use
  Company Number: CH-009507513-1402CHE008277

PATIENT
  Age: 68 Year
  Sex: Female

DRUGS (10)
  1. REMERON [Suspect]
     Indication: SUICIDE ATTEMPT
     Dosage: 20 DOSAGE FORMS, TOTAL DAILY DOSE 600 MG, ONCE
     Route: 048
     Dates: start: 20140206, end: 20140206
  2. COSAAR + COSAAR 50 [Suspect]
     Indication: SUICIDE ATTEMPT
     Dosage: 10 DOSAGE FORMS, TOTAL DAILY DOSE 500 MG, ONCE
     Route: 048
     Dates: start: 20140206, end: 20140206
  3. INDERAL [Suspect]
     Indication: SUICIDE ATTEMPT
     Dosage: 13 DOSAGE FORMS, TOTAL DAILY DOSE 2080MG, ONCE
     Route: 048
     Dates: start: 20140206, end: 20140206
  4. REMERON [Concomitant]
     Indication: DEPRESSION
     Dosage: 30 MG, 1 PER 1 DAY
     Route: 048
  5. COSAAR + COSAAR 50 [Concomitant]
     Dosage: 75 MG, QD; ALSO REPORTED AS 1 1/2 COSAAR 50 MG TABLETS TWICE DAILY.
     Route: 048
  6. INDERAL [Concomitant]
     Indication: ESSENTIAL HYPERTENSION
     Dosage: 160 MG, 1 PER 1 DAYS
     Route: 048
  7. ASPIRIN [Concomitant]
     Indication: HYPERTENSIVE CARDIOMYOPATHY
     Dosage: 100 MG, 1 PER 1 DAY
     Route: 048
  8. TOREM [Concomitant]
     Indication: HYPERTENSIVE CARDIOMYOPATHY
     Dosage: 5 MG, 1 PER 1 DAY
     Route: 048
  9. SIMVASTATIN [Concomitant]
     Dosage: 20 MG, 1 PER 1 DAY
     Route: 048
  10. GLUCOPHAGE [Concomitant]
     Indication: TYPE 2 DIABETES MELLITUS
     Dosage: 500 MG, 1 PER 12 HOURS
     Route: 048

REACTIONS (4)
  - Hyperglycaemia [Recovered/Resolved]
  - Electrocardiogram QT prolonged [Unknown]
  - Blood pressure increased [Unknown]
  - Intentional overdose [Recovering/Resolving]
